FAERS Safety Report 16095231 (Version 1)
Quarter: 2019Q1

REPORT INFORMATION
  Report Type: Report from Study
  Country: CN (occurrence: CN)
  Receive Date: 20190320
  Receipt Date: 20190320
  Transmission Date: 20190418
  Serious: Yes (Death, Hospitalization, Other)
  Sender: FDA-Public Use
  Company Number: CN-BAYER-2019-050333

PATIENT

DRUGS (4)
  1. ASPIRIN 100 MG [Suspect]
     Active Substance: ASPIRIN
     Indication: ANTIPLATELET THERAPY
     Dosage: 100 MG, QD
  2. CLOPIDOGREL [Suspect]
     Active Substance: CLOPIDOGREL BISULFATE
     Indication: ANTIPLATELET THERAPY
     Dosage: 75 MG, QD
  3. COUMARIN [Suspect]
     Active Substance: COUMARIN
     Indication: ANTICOAGULANT THERAPY
     Dosage: UNK
     Route: 048
  4. HEPARIN [Suspect]
     Active Substance: HEPARIN SODIUM
     Dosage: UNK
     Route: 042

REACTIONS (3)
  - Product use in unapproved indication [None]
  - Cerebellar haematoma [Fatal]
  - Off label use [None]
